FAERS Safety Report 5115207-8 (Version None)
Quarter: 2006Q3

REPORT INFORMATION
  Report Type: 
  Country: None (occurrence: None)
  Receive Date: 20060926
  Receipt Date: 20060921
  Transmission Date: 20061208
  Serious: Yes (Death)
  Sender: FDA-Public Use
  Company Number: MK-ROXANE LABORATORIES, INC-2006-DE-05094GD

PATIENT

DRUGS (1)
  1. CALCIUM CARBONATE [Suspect]
     Indication: HYPERPHOSPHATAEMIA
     Dosage: TITRATED UP TO A MAXIMUM DOSE OF 4000 MG/D IN ORDER TO ACHIEVE OPTIMAL CONTROL OF SERUM PHOSPHORUS L
     Route: 048

REACTIONS (1)
  - DEATH [None]
